FAERS Safety Report 7927087-3 (Version None)
Quarter: 2011Q4

REPORT INFORMATION
  Report Type: 
  Country: None (occurrence: None)
  Receive Date: 20111118
  Receipt Date: 20111103
  Transmission Date: 20120403
  Serious: No
  Sender: FDA-Public Use
  Company Number: US-B.I. PHARMACEUTICALS,INC./RIDGEFIELD-2011-BP-25549BP

PATIENT
  Sex: Male

DRUGS (8)
  1. LANTUS [Concomitant]
     Indication: DIABETES MELLITUS
  2. DIGOXIN [Concomitant]
     Indication: ATRIAL FIBRILLATION
     Dosage: 25 MG
     Route: 048
  3. ALLOPURINOL [Concomitant]
     Indication: GOUT
  4. FUROSEMIDE [Concomitant]
     Indication: HYPERTENSION
  5. PRADAXA [Suspect]
     Indication: ATRIAL FIBRILLATION
     Dosage: 300 MG
     Route: 048
     Dates: start: 20111001
  6. LIPITOR [Concomitant]
     Indication: BLOOD CHOLESTEROL INCREASED
  7. GLYBURIDE [Concomitant]
     Indication: DIABETES MELLITUS
  8. LISINOPRIL [Concomitant]
     Indication: HYPERTENSION
     Dosage: 30 MG
     Route: 048

REACTIONS (5)
  - SKIN DISCOLOURATION [None]
  - CYANOSIS [None]
  - BLOOD GLUCOSE INCREASED [None]
  - INFLAMMATION [None]
  - MUSCULAR WEAKNESS [None]
